FAERS Safety Report 4980558-4 (Version None)
Quarter: 2006Q2

REPORT INFORMATION
  Report Type: 
  Country: None (occurrence: None)
  Receive Date: 20060424
  Receipt Date: 20060411
  Transmission Date: 20061013
  Serious: Yes (Hospitalization)
  Sender: FDA-Public Use
  Company Number: GB-MERCK-0604GBR00071

PATIENT
  Age: 80 Year
  Sex: Male

DRUGS (4)
  1. INDOCIN [Suspect]
     Indication: GOUT
     Route: 048
  2. ETIDRONATE DISODIUM [Concomitant]
     Route: 048
  3. RANITIDINE [Concomitant]
     Route: 048
  4. MAGNESIUM TRISILICATE [Concomitant]
     Route: 048

REACTIONS (3)
  - HAEMATEMESIS [None]
  - HAEMOGLOBIN DECREASED [None]
  - MELAENA [None]
